FAERS Safety Report 9173527 (Version 4)
Quarter: 2013Q2

REPORT INFORMATION
  Report Type: Spontaneous
  Country: US (occurrence: None)
  Receive Date: 20130314
  Receipt Date: 20130501
  Transmission Date: 20140414
  Serious: Yes (Hospitalization, Other)
  Sender: FDA-Public Use
  Company Number: JPI-P-030350

PATIENT
  Age: 68 Year
  Sex: Female
  Weight: 81.19 kg

DRUGS (9)
  1. XYREM [Suspect]
     Indication: HYPERSOMNIA
     Dosage: 4.5 GM (2.25 GM, 2 IN 1 D), ORAL
     Route: 048
     Dates: start: 20060621
  2. LITHIUM [Suspect]
     Indication: BIPOLAR DISORDER
     Route: 048
     Dates: start: 1997, end: 20130109
  3. LITHIUM [Suspect]
     Indication: DEPRESSION
     Route: 048
     Dates: start: 1997, end: 20130109
  4. MODAFINIL [Concomitant]
  5. PREGABALIN [Concomitant]
  6. PRAVASTATIN SODIUM [Concomitant]
  7. LISINOPRIL [Concomitant]
  8. ASPPIRIN [Concomitant]
  9. OMEGA-3 [Concomitant]

REACTIONS (10)
  - Toxicity to various agents [None]
  - Renal failure [None]
  - Catheterisation cardiac [None]
  - Fall [None]
  - Joint injury [None]
  - Joint injury [None]
  - Balance disorder [None]
  - Herpes zoster [None]
  - Tremor [None]
  - Feeling abnormal [None]
